FAERS Safety Report 26001145 (Version 4)
Quarter: 2025Q4

REPORT INFORMATION
  Report Type: Report from Study
  Country: US (occurrence: US)
  Receive Date: 20251105
  Receipt Date: 20251120
  Transmission Date: 20260117
  Serious: Yes (Other)
  Sender: MALLINCKRODT
  Company Number: US-MALLINCKRODT-MNK202506684

PATIENT
  Age: 19 Month
  Sex: Male
  Weight: 12 kg

DRUGS (2)
  1. CORTICOTROPIN [Suspect]
     Active Substance: CORTICOTROPIN
     Indication: Infantile spasms
     Route: 030
     Dates: start: 20251023, end: 2025
  2. CORTICOTROPIN [Suspect]
     Active Substance: CORTICOTROPIN
     Indication: Infantile spasms
     Dosage: UNKNOWN (TAPER)
     Dates: start: 2025

REACTIONS (6)
  - Blood pressure abnormal [Unknown]
  - Infantile spasms [Unknown]
  - Condition aggravated [Unknown]
  - Blood glucose increased [Unknown]
  - Fluid retention [Unknown]
  - Absence of immediate treatment response [Not Recovered/Not Resolved]

NARRATIVE: CASE EVENT DATE: 20250101
